FAERS Safety Report 8383645-6 (Version None)
Quarter: 2012Q2

REPORT INFORMATION
  Report Type: 
  Country: None (occurrence: None)
  Receive Date: 20120524
  Receipt Date: 20120521
  Transmission Date: 20120825
  Serious: Yes (Hospitalization, Other)
  Sender: FDA-Public Use
  Company Number: US-TEVA-339535USA

PATIENT
  Age: 84 Year
  Sex: Male

DRUGS (4)
  1. ETHAMBUTOL HYDROCHLORIDE [Concomitant]
     Indication: EXTRAPULMONARY TUBERCULOSIS
     Route: 065
  2. ISONIAZID [Suspect]
     Indication: EXTRAPULMONARY TUBERCULOSIS
     Route: 065
  3. RIFAMPICIN [Concomitant]
     Indication: EXTRAPULMONARY TUBERCULOSIS
     Route: 065
  4. PYRAZINAMIDE [Concomitant]
     Indication: EXTRAPULMONARY TUBERCULOSIS
     Route: 065

REACTIONS (2)
  - LUPUS-LIKE SYNDROME [None]
  - PLEURAL EFFUSION [None]
